FAERS Safety Report 6175394-X (Version None)
Quarter: 2009Q2

REPORT INFORMATION
  Report Type: 
  Country: None (occurrence: None)
  Receive Date: 20090430
  Receipt Date: 20081229
  Transmission Date: 20091009
  Serious: No
  Sender: FDA-Public Use
  Company Number: US-ASTRAZENECA-2008UW28916

PATIENT
  Age: 49 Year
  Sex: Female

DRUGS (1)
  1. NEXIUM [Suspect]
     Indication: ILL-DEFINED DISORDER
     Route: 042

REACTIONS (2)
  - PAIN IN EXTREMITY [None]
  - PRODUCT QUALITY ISSUE [None]
